FAERS Safety Report 9131097 (Version 1)
Quarter: 2013Q1

REPORT INFORMATION
  Report Type: Spontaneous
  Country: US (occurrence: US)
  Receive Date: 20130301
  Receipt Date: 20130301
  Transmission Date: 20140127
  Serious: Yes (Other)
  Sender: FDA-Public Use
  Company Number: US-JNJFOC-20130212243

PATIENT
  Sex: 0

DRUGS (8)
  1. DOXORUBICIN [Suspect]
     Indication: LUNG NEOPLASM MALIGNANT
     Route: 042
  2. BEVACIZUMAB [Suspect]
     Indication: LUNG NEOPLASM MALIGNANT
     Route: 065
  3. CARBOPLATIN [Suspect]
     Indication: LUNG NEOPLASM MALIGNANT
     Route: 065
  4. CETUXIMAB [Suspect]
     Indication: LUNG NEOPLASM MALIGNANT
     Route: 065
  5. OXALIPLATIN [Suspect]
     Indication: LUNG NEOPLASM MALIGNANT
     Route: 065
  6. AN UNKNOWN MEDICATION [Suspect]
     Indication: LUNG NEOPLASM MALIGNANT
     Route: 065
  7. AN UNKNOWN MEDICATION [Suspect]
     Indication: LUNG NEOPLASM MALIGNANT
     Route: 065
  8. CISPLATINUM [Suspect]
     Indication: LUNG NEOPLASM MALIGNANT
     Route: 065

REACTIONS (4)
  - Haemorrhage [Unknown]
  - Pulmonary embolism [Unknown]
  - Deep vein thrombosis [Unknown]
  - Off label use [Unknown]
